FAERS Safety Report 8327223-3 (Version None)
Quarter: 2012Q2

REPORT INFORMATION
  Report Type: 
  Country: None (occurrence: None)
  Receive Date: 20120501
  Receipt Date: 20120417
  Transmission Date: 20120825
  Serious: Yes (Hospitalization)
  Sender: FDA-Public Use
  Company Number: NL-BAXTER-2012BAX003726

PATIENT
  Age: 81 Year
  Sex: Male

DRUGS (5)
  1. PHYSIONEAL 40 GLUCOSE 2.27% W/V / 22.7 MG/ML [Suspect]
     Route: 033
     Dates: start: 20100329
  2. VITAMIN D [Concomitant]
     Route: 065
  3. EXTRANEAL [Suspect]
     Route: 033
     Dates: start: 20100329
  4. NUTRINEAL [Suspect]
     Route: 033
  5. EPOGEN [Concomitant]
     Route: 065

REACTIONS (2)
  - HAEMORRHAGIC ANAEMIA [None]
  - EPISTAXIS [None]
